FAERS Safety Report 15941927 (Version 1)
Quarter: 2019Q1

REPORT INFORMATION
  Report Type: Spontaneous
  Country: CN (occurrence: CN)
  Receive Date: 20190209
  Receipt Date: 20190209
  Transmission Date: 20190417
  Serious: Yes (Hospitalization)
  Sender: FDA-Public Use
  Company Number: CN-AMGEN-CHNSP2019017213

PATIENT
  Sex: Male

DRUGS (7)
  1. SODIUM NITROPRUSSIDE. [Concomitant]
     Active Substance: SODIUM NITROPRUSSIDE
     Indication: RENAL HYPERTENSION
     Dosage: AS NEEDED, PRN
     Route: 042
     Dates: start: 201812, end: 201901
  2. METOPROLOL. [Concomitant]
     Active Substance: METOPROLOL
     Indication: HYPERTENSION
     Dosage: 25 MG, QD
     Route: 048
     Dates: start: 2018, end: 201901
  3. DOXAZOSIN [Concomitant]
     Active Substance: DOXAZOSIN\DOXAZOSIN MESYLATE
     Indication: RENAL HYPERTENSION
     Dosage: 1 GRAIN, QD
     Route: 048
     Dates: start: 201901
  4. NIFEDIPINE. [Concomitant]
     Active Substance: NIFEDIPINE
     Indication: HYPOTENSION
     Dosage: UNK UNK, PRN,QD
     Route: 048
     Dates: start: 2016, end: 201812
  5. FELODIPINE. [Concomitant]
     Active Substance: FELODIPINE
     Indication: RENAL HYPERTENSION
     Dosage: AS NEEDED, QD
     Route: 048
     Dates: start: 201812
  6. REGPARA [Suspect]
     Active Substance: CINACALCET HYDROCHLORIDE
     Indication: HYPERPARATHYROIDISM SECONDARY
     Dosage: 25 MG, QD
     Route: 048
     Dates: start: 2018
  7. BENAZEPRIL [Concomitant]
     Active Substance: BENAZEPRIL HYDROCHLORIDE
     Indication: HYPERTENSION
     Dosage: AS NEEDED PRN
     Route: 048
     Dates: start: 20181220

REACTIONS (4)
  - Decreased appetite [Recovered/Resolved]
  - Nausea [Recovered/Resolved]
  - Renal hypertension [Recovering/Resolving]
  - Retching [Recovered/Resolved]

NARRATIVE: CASE EVENT DATE: 2018
